FAERS Safety Report 4653185-6 (Version None)
Quarter: 2005Q2

REPORT INFORMATION
  Report Type: 
  Country: None (occurrence: None)
  Receive Date: 20050503
  Receipt Date: 20050420
  Transmission Date: 20051028
  Serious: Yes (Other)
  Sender: FDA-Public Use
  Company Number: S05-USA-02177-01

PATIENT
  Age: 78 Year
  Sex: Female

DRUGS (2)
  1. NAMENDA [Suspect]
     Dosage: 10 MG QD PO
     Route: 048
  2. NAMENDA [Suspect]
     Dosage: 5 MG QD PO
     Route: 048

REACTIONS (2)
  - CARDIAC DISORDER [None]
  - NERVOUS SYSTEM DISORDER [None]
